FAERS Safety Report 5955101-3 (Version None)
Quarter: 2008Q4

REPORT INFORMATION
  Report Type: 
  Country: None (occurrence: None)
  Receive Date: 20081112
  Receipt Date: 20081030
  Transmission Date: 20090506
  Serious: Yes (Death, Hospitalization)
  Sender: FDA-Public Use
  Company Number: 000613

PATIENT
  Age: 34 Year
  Sex: Female

DRUGS (5)
  1. BUSULFEX [Suspect]
     Indication: STEM CELL TRANSPLANT
     Dosage: 6 ML, Q6HR INTRAVENOUS
     Route: 042
     Dates: start: 20070307, end: 20070308
  2. FLUDARABINE PHOSPHATE [Concomitant]
  3. VALPROATE SODIUM [Concomitant]
  4. FILGRASTIM (FILGRASTIM) [Concomitant]
  5. TACROLIMUS [Concomitant]

REACTIONS (4)
  - BONE MARROW TRANSPLANT REJECTION [None]
  - CORD BLOOD TRANSPLANT THERAPY [None]
  - ENTEROCOCCAL SEPSIS [None]
  - IDIOPATHIC PNEUMONIA SYNDROME [None]
